FAERS Safety Report 7879455-6 (Version None)
Quarter: 2011Q4

REPORT INFORMATION
  Report Type: 
  Country: None (occurrence: None)
  Receive Date: 20111101
  Receipt Date: 20111021
  Transmission Date: 20120403
  Serious: Yes (Hospitalization, Other)
  Sender: FDA-Public Use
  Company Number: US-BAYER-2011-104530

PATIENT
  Age: 27 Year
  Sex: Female
  Weight: 51 kg

DRUGS (6)
  1. YASMIN [Suspect]
     Indication: CONTRACEPTION
     Dosage: UNK
     Route: 048
     Dates: start: 20020701, end: 20030701
  2. ALLEGRA [Concomitant]
     Indication: MULTIPLE ALLERGIES
     Dosage: DAILY
     Dates: start: 19990101, end: 20050101
  3. TYLENOL-500 [Concomitant]
     Indication: HEADACHE
  4. TYLENOL-500 [Concomitant]
     Indication: MUSCLE SPASMS
     Dosage: 1000 MG, UNK
  5. DIFLUCAN [Concomitant]
     Dosage: 150 MG, AS DIRECTED
     Dates: start: 20030427
  6. ZITHROMAX [Concomitant]
     Dosage: UNK
     Dates: start: 20021001, end: 20030501

REACTIONS (8)
  - DEEP VEIN THROMBOSIS [None]
  - THROMBOPHLEBITIS SUPERFICIAL [None]
  - MENTAL DISORDER [None]
  - PULMONARY EMBOLISM [None]
  - MUSCLE SPASMS [None]
  - DYSPNOEA [None]
  - CHEST PAIN [None]
  - PAIN IN EXTREMITY [None]
